FAERS Safety Report 5782004-X (Version None)
Quarter: 2008Q2

REPORT INFORMATION
  Report Type: 
  Country: None (occurrence: None)
  Receive Date: 20080623
  Receipt Date: 20080612
  Transmission Date: 20081010
  Serious: Yes (Other)
  Sender: FDA-Public Use
  Company Number: JP-JNJFOC-20080604155

PATIENT
  Sex: Male

DRUGS (10)
  1. FINIBAX [Suspect]
     Route: 041
  2. FINIBAX [Suspect]
     Indication: PNEUMONIA
     Route: 041
  3. BAKTAR [Suspect]
     Indication: PNEUMONIA
     Route: 065
  4. CLARITHROMYCIN [Concomitant]
     Indication: PNEUMONIA
     Route: 048
  5. BIO-THREE [Concomitant]
     Indication: ENTEROCOLITIS
     Route: 048
  6. FUNGUARD [Concomitant]
     Route: 041
  7. FUNGUARD [Concomitant]
     Indication: PNEUMONIA
     Route: 041
  8. RABEPRAZOLE SODIUM [Concomitant]
     Indication: GASTRITIS
     Route: 048
  9. PRIDOL [Concomitant]
     Route: 041
  10. PRIDOL [Concomitant]
     Indication: RADIATION PNEUMONITIS
     Route: 041

REACTIONS (1)
  - PLATELET COUNT DECREASED [None]
